FAERS Safety Report 5757467-6 (Version None)
Quarter: 2008Q2

REPORT INFORMATION
  Report Type: 
  Country: None (occurrence: None)
  Receive Date: 20080603
  Receipt Date: 20080522
  Transmission Date: 20081010
  Serious: Yes (Hospitalization)
  Sender: FDA-Public Use
  Company Number: FR-GILEAD-2008-0016017

PATIENT
  Sex: Male

DRUGS (6)
  1. TRUVADA [Suspect]
     Indication: HIV INFECTION
     Route: 048
     Dates: start: 20070919, end: 20080111
  2. SUSTIVA [Concomitant]
     Dates: start: 20000101
  3. TARKA [Concomitant]
     Indication: HYPERTENSION
  4. FOSAMAX [Concomitant]
     Indication: OSTEOPOROSIS
  5. OSSEANS [Concomitant]
     Indication: OSTEOPOROSIS
  6. KOGENATE [Concomitant]

REACTIONS (1)
  - HAEMARTHROSIS [None]
